FAERS Safety Report 10776397 (Version 1)
Quarter: 2015Q1

REPORT INFORMATION
  Report Type: Spontaneous
  Country: US (occurrence: US)
  Receive Date: 20150209
  Receipt Date: 20150209
  Transmission Date: 20150721
  Serious: No
  Sender: FDA-Public Use
  Company Number: US-GILEAD-2013-0079390

PATIENT
  Age: 75 Year
  Sex: Female

DRUGS (16)
  1. COLCRYS [Concomitant]
     Active Substance: COLCHICINE
  2. ADVAIR HFA [Concomitant]
     Active Substance: FLUTICASONE PROPIONATE\SALMETEROL XINAFOATE
  3. PLAVIX [Concomitant]
     Active Substance: CLOPIDOGREL BISULFATE
  4. OXYCODONE [Concomitant]
     Active Substance: OXYCODONE
  5. GABAPENTIN. [Concomitant]
     Active Substance: GABAPENTIN
  6. ASPIRIN. [Concomitant]
     Active Substance: ASPIRIN
  7. VITAMIN D3 [Concomitant]
     Active Substance: CHOLECALCIFEROL
  8. RANEXA [Suspect]
     Active Substance: RANOLAZINE
     Indication: PRODUCT USED FOR UNKNOWN INDICATION
     Dosage: 75 MG, UNK
     Route: 048
  9. RINOCORT [Concomitant]
  10. FERROUS SULFATE [Concomitant]
     Active Substance: FERROUS SULFATE\FERROUS SULFATE, DRIED
  11. BENADRYL [Concomitant]
     Active Substance: DIPHENHYDRAMINE HYDROCHLORIDE
  12. ZAROXOLYN [Concomitant]
     Active Substance: METOLAZONE
  13. MELATONIN [Concomitant]
     Active Substance: MELATONIN
  14. METOLAZONE. [Concomitant]
     Active Substance: METOLAZONE
  15. NITROSTAT [Concomitant]
     Active Substance: NITROGLYCERIN
  16. ATORVASTATIN [Concomitant]
     Active Substance: ATORVASTATIN

REACTIONS (3)
  - Swelling [Unknown]
  - Tremor [Unknown]
  - Constipation [Unknown]
